FAERS Safety Report 6680913-0 (Version None)
Quarter: 2010Q2

REPORT INFORMATION
  Report Type: 
  Country: None (occurrence: None)
  Receive Date: 20100414
  Receipt Date: 20100407
  Transmission Date: 20101027
  Serious: Yes (Hospitalization, Other)
  Sender: FDA-Public Use
  Company Number: US-JNJFOC-20100204051

PATIENT
  Sex: Female
  Weight: 68.04 kg

DRUGS (1)
  1. ORTHO-NOVUM 1/50 21 [Suspect]
     Indication: ENDOMETRIOSIS
     Route: 048

REACTIONS (7)
  - ABDOMINAL PAIN [None]
  - DRUG DOSE OMISSION [None]
  - GUILLAIN-BARRE SYNDROME [None]
  - HOT FLUSH [None]
  - METRORRHAGIA [None]
  - OFF LABEL USE [None]
  - SUPRAVENTRICULAR TACHYCARDIA [None]
